FAERS Safety Report 5718790-4 (Version None)
Quarter: 2008Q2

REPORT INFORMATION
  Report Type: 
  Country: None (occurrence: None)
  Receive Date: 20080425
  Receipt Date: 20080331
  Transmission Date: 20081010
  Serious: No
  Sender: FDA-Public Use
  Company Number: US-BOEHRINGER INGELHEIM GMBH, GERMANY-2008-BP-04929BP

PATIENT
  Sex: Female

DRUGS (5)
  1. MIRAPEX [Suspect]
     Indication: PARKINSON'S DISEASE
     Route: 048
     Dates: start: 20080326
  2. STALEVO 100 [Concomitant]
     Indication: PARKINSON'S DISEASE
  3. SYNTHROID [Concomitant]
  4. WELLBUTRIN [Concomitant]
  5. VITAMINS [Concomitant]

REACTIONS (1)
  - DYSKINESIA [None]
